FAERS Safety Report 5081110-5 (Version None)
Quarter: 2006Q3

REPORT INFORMATION
  Report Type: 
  Country: None (occurrence: None)
  Receive Date: 20060720
  Receipt Date: 20060105
  Transmission Date: 20061208
  Serious: Yes (Disabling, Other)
  Sender: FDA-Public Use
  Company Number: 2006006434

PATIENT
  Sex: Male

DRUGS (5)
  1. CELEBREX [Suspect]
     Indication: CHEST PAIN
     Dates: start: 19990101
  2. CELEBREX [Suspect]
     Indication: MUSCULOSKELETAL DISORDER
     Dates: start: 19990101
  3. VIOXX [Suspect]
     Indication: ARTHRALGIA
     Dates: start: 20000101
  4. VIOXX [Suspect]
     Indication: ARTHRITIS
     Dates: start: 20000101
  5. VIOXX [Suspect]
     Indication: MUSCULOSKELETAL DISORDER
     Dates: start: 20000101

REACTIONS (4)
  - CARDIOVASCULAR DISORDER [None]
  - DEPRESSION [None]
  - HYPERTENSION [None]
  - RENAL FAILURE [None]
